FAERS Safety Report 4870599-X (Version None)
Quarter: 2005Q4

REPORT INFORMATION
  Report Type: 
  Country: None (occurrence: None)
  Receive Date: 20051228
  Receipt Date: 20051216
  Transmission Date: 20060501
  Serious: Yes (Hospitalization)
  Sender: FDA-Public Use
  Company Number: 2005149087

PATIENT
  Age: 82 Year
  Sex: Male

DRUGS (5)
  1. UNASYN [Suspect]
     Indication: PNEUMONIA
     Dosage: 6 GRAM (2 IN 1 D), INTRAVENOUS
     Route: 042
     Dates: start: 20051002, end: 20051014
  2. UNASYN [Suspect]
     Indication: PNEUMONIA
     Dosage: 1125 MG (3 IN 1 D), ORAL
     Route: 048
     Dates: start: 20051015, end: 20051020
  3. ACTIT (MAGNESIUM CHLORIDE ANHYDROUS, MALTOSE, POTASSIUM CHLORIDE, POTA [Concomitant]
  4. AMICALIQ (AMINO ACIDS NOS, ELECTROLYTES NOS, GLUCOSE) [Concomitant]
  5. HUSCODE (CHLORPHENAMINE MALEATE, DIHYDROCODEINE PHOSPHATE, METHYLEPHED [Concomitant]

REACTIONS (1)
  - HYPERKALAEMIA [None]
